FAERS Safety Report 8546529-6 (Version None)
Quarter: 2012Q3

REPORT INFORMATION
  Report Type: 
  Country: None (occurrence: None)
  Receive Date: 20120727
  Receipt Date: 20120718
  Transmission Date: 20120928
  Serious: Yes (Death)
  Sender: FDA-Public Use
  Company Number: JP-ALLERGAN-1210377US

PATIENT
  Age: 83 Year
  Sex: Male

DRUGS (4)
  1. HYALEIN [Concomitant]
     Indication: PRODUCT USED FOR UNKNOWN INDICATION
     Dosage: UNK
     Dates: start: 20110523
  2. LUMIGAN [Suspect]
     Indication: OPEN ANGLE GLAUCOMA
     Dosage: 2 GTT, QD
     Route: 047
     Dates: start: 20110330, end: 20110928
  3. LEVOFLOXACIN [Concomitant]
     Indication: PRODUCT USED FOR UNKNOWN INDICATION
     Dosage: UNK
  4. ZIOPTAN [Concomitant]
     Indication: OPEN ANGLE GLAUCOMA
     Dosage: UNK
     Dates: start: 20101101, end: 20110330

REACTIONS (2)
  - BLADDER CANCER [None]
  - CONJUNCTIVAL HYPERAEMIA [None]
